FAERS Safety Report 18633425 (Version 1)
Quarter: 2020Q4

REPORT INFORMATION
  Report Type: Other
  Country: TN (occurrence: TN)
  Receive Date: 20201218
  Receipt Date: 20201218
  Transmission Date: 20210114
  Serious: Yes (Hospitalization)
  Sender: FDA-Public Use
  Company Number: TN-NUVO PHARMACEUTICALS INC-2103165

PATIENT
  Age: 28 Year
  Sex: Male

DRUGS (3)
  1. INDOMETHACIN. [Concomitant]
     Active Substance: INDOMETHACIN
     Route: 065
  2. NAPROXEN. [Suspect]
     Active Substance: NAPROXEN
     Indication: BACK PAIN
     Route: 065
  3. DICLOFENAC OPHTHALMIC [Concomitant]
     Active Substance: DICLOFENAC SODIUM
     Route: 065

REACTIONS (1)
  - Drug ineffective [Unknown]
